FAERS Safety Report 7764651-9 (Version None)
Quarter: 2011Q3

REPORT INFORMATION
  Report Type: 
  Country: None (occurrence: None)
  Receive Date: 20110921
  Receipt Date: 20110916
  Transmission Date: 20111222
  Serious: No
  Sender: FDA-Public Use
  Company Number: PHEH2011US04399

PATIENT
  Sex: Male

DRUGS (4)
  1. ZOFRAN [Concomitant]
  2. VICODIN [Concomitant]
  3. TASIGNA [Suspect]
     Dosage: 200 MG, BID
     Dates: end: 20110914
  4. TASIGNA [Suspect]
     Dosage: 300 MG, BID
     Route: 048
     Dates: start: 20100701

REACTIONS (3)
  - ARTHRALGIA [None]
  - ABDOMINAL PAIN UPPER [None]
  - BACK PAIN [None]
